FAERS Safety Report 21224075 (Version 1)
Quarter: 2022Q3

REPORT INFORMATION
  Report Type: Spontaneous
  Country: US (occurrence: US)
  Receive Date: 20220817
  Receipt Date: 20220817
  Transmission Date: 20221026
  Serious: No
  Sender: FDA-Public Use
  Company Number: US-SA-2022MK000050

PATIENT
  Age: 66 Year
  Sex: Female
  Weight: 66.738 kg

DRUGS (17)
  1. AFREZZA [Suspect]
     Active Substance: INSULIN HUMAN
     Indication: Type 1 diabetes mellitus
     Dosage: 4-8 UNITS INHALED AFTER MEALS PER PHYSICIAN
     Dates: start: 2017
  2. AFREZZA [Suspect]
     Active Substance: INSULIN HUMAN
     Dosage: 4-8 UNITS INHALED AFTER MEALS PER PHYSICIAN
     Dates: start: 2017
  3. TRESIBA [Concomitant]
     Active Substance: INSULIN DEGLUDEC
     Indication: Type 1 diabetes mellitus
     Route: 058
     Dates: start: 2017
  4. LOSARTAN [Concomitant]
     Active Substance: LOSARTAN
     Route: 048
  5. NEXIUM [Concomitant]
     Active Substance: ESOMEPRAZOLE MAGNESIUM
     Route: 048
  6. REGLAN [Concomitant]
     Active Substance: METOCLOPRAMIDE HYDROCHLORIDE
     Route: 048
  7. SIMVASTATIN [Concomitant]
     Active Substance: SIMVASTATIN
     Route: 048
  8. NIFEDIPINE [Concomitant]
     Active Substance: NIFEDIPINE
     Route: 048
  9. MONTELUKAST [Concomitant]
     Active Substance: MONTELUKAST SODIUM
     Route: 048
  10. MELOXICAM [Concomitant]
     Active Substance: MELOXICAM
     Route: 048
  11. ZYRTEC [Concomitant]
     Active Substance: CETIRIZINE HYDROCHLORIDE
     Route: 048
  12. LYRICA [Concomitant]
     Active Substance: PREGABALIN
     Route: 048
  13. HYDROXYCHLOROQUINE [Concomitant]
     Active Substance: HYDROXYCHLOROQUINE
     Route: 048
  14. zeaxanthin/lutein [Concomitant]
     Dosage: 800MCG/20MG
     Route: 048
  15. cranberry tablets [Concomitant]
     Route: 048
  16. CALCIUM [Concomitant]
     Active Substance: CALCIUM
     Route: 048
  17. VITAMIN D3 [Concomitant]
     Active Substance: CHOLECALCIFEROL
     Route: 048

REACTIONS (1)
  - Hypoglycaemia [Unknown]
